FAERS Safety Report 7200061-0 (Version None)
Quarter: 2010Q4

REPORT INFORMATION
  Report Type: 
  Country: None (occurrence: None)
  Receive Date: 20101214
  Receipt Date: 20101201
  Transmission Date: 20110411
  Serious: Yes (Other)
  Sender: FDA-Public Use
  Company Number: GB-1184277

PATIENT
  Age: 13 Year
  Sex: Male

DRUGS (5)
  1. VEXOL [Suspect]
     Dosage: OPHTHALMIC
     Route: 047
  2. EQUASYM (METHYLPHENIDATE HYDROCHLORIDE) TABLET [Suspect]
     Indication: ATTENTION DEFICIT/HYPERACTIVITY DISORDER
     Dosage: 50 MG QD, ORAL
     Route: 048
     Dates: start: 20060901
  3. PRED FORTE [Suspect]
     Dosage: OPHTHALMIC
     Route: 047
  4. RISPERIDONE [Suspect]
     Indication: ATTENTION DEFICIT/HYPERACTIVITY DISORDER
     Dosage: 0.25 MG BID, ORAL
     Route: 048
     Dates: start: 20060601
  5. RITALIN [Concomitant]

REACTIONS (2)
  - BENIGN INTRACRANIAL HYPERTENSION [None]
  - EYE SWELLING [None]
